FAERS Safety Report 9159756 (Version 1)
Quarter: 2013Q1

REPORT INFORMATION
  Report Type: Spontaneous
  Country: US (occurrence: None)
  Receive Date: 20130220
  Receipt Date: 20130220
  Transmission Date: 20140127
  Serious: Yes (Hospitalization)
  Sender: FDA-Public Use
  Company Number: 2013PL000031

PATIENT
  Age: 28 Year
  Sex: Female

DRUGS (2)
  1. IMURAN (AZATHIOPRINE) [Suspect]
     Indication: PRODUCT USED FOR UNKNOWN INDICATION
  2. HUMIRA [Suspect]
     Indication: CROHN^S DISEASE
     Dates: start: 20121118, end: 201212

REACTIONS (9)
  - Drug hypersensitivity [None]
  - Throat tightness [None]
  - Dyspnoea [None]
  - Urticaria [None]
  - Palpitations [None]
  - Feeling abnormal [None]
  - Vomiting [None]
  - Eating disorder [None]
  - Fatigue [None]
